FAERS Safety Report 9298520 (Version 1)
Quarter: 2013Q2

REPORT INFORMATION
  Report Type: Spontaneous
  Country: CH (occurrence: CH)
  Receive Date: 20130520
  Receipt Date: 20130520
  Transmission Date: 20140414
  Serious: Yes (Hospitalization)
  Sender: FDA-Public Use
  Company Number: PHHY2013CH048401

PATIENT
  Age: 79 Year
  Sex: Male

DRUGS (8)
  1. LEPONEX [Suspect]
     Dosage: 25 MG, UNK
     Route: 048
  2. ENTUMIN [Suspect]
     Dosage: 20 MG, UNK
     Route: 048
  3. CONCOR [Suspect]
     Route: 048
  4. TEMESTA [Suspect]
     Dosage: 2.5 MG, QD
     Route: 048
  5. CRESTOR [Suspect]
     Dosage: 10 MG, QD
     Route: 048
  6. ASPIRIN CARDIO [Concomitant]
     Dosage: 100 MG, QD
     Route: 048
  7. PRADIF [Concomitant]
     Dosage: 400 MG, UNK
     Route: 048
  8. DETRUSITOL [Concomitant]
     Dosage: 4 MG, QD
     Route: 048

REACTIONS (11)
  - Fall [Recovered/Resolved]
  - Liver disorder [Unknown]
  - Hepatic enzyme increased [Recovered/Resolved]
  - Transaminases increased [Unknown]
  - Extrapyramidal disorder [Recovering/Resolving]
  - General physical health deterioration [Unknown]
  - Parkinsonism [Unknown]
  - Parkinsonian gait [Unknown]
  - Pneumonia [Unknown]
  - Pyrexia [Unknown]
  - Somnolence [Recovered/Resolved]
